FAERS Safety Report 8429812-4 (Version None)
Quarter: 2012Q2

REPORT INFORMATION
  Report Type: 
  Country: None (occurrence: None)
  Receive Date: 20120323
  Receipt Date: 20110222
  Transmission Date: 20120825
  Serious: Yes (Hospitalization, Other)
  Sender: FDA-Public Use
  Company Number: 163-21880-11022670

PATIENT
  Age: 62 Year
  Sex: Male

DRUGS (8)
  1. REVLIMID [Suspect]
     Indication: ACUTE MYELOID LEUKAEMIA
     Dosage: 25 MG, 2 IN 1 D, PO
     Route: 048
     Dates: start: 20101201, end: 20110208
  2. HYDROCODONE/APAP (PROCET /USA/) [Concomitant]
  3. LOPRESSOR [Concomitant]
  4. HYDROCORTONE [Concomitant]
  5. OXYCONTIN [Concomitant]
  6. LEVOTHYROID (LEVOTHYROXINE SODIUM) [Concomitant]
  7. PLAVIX [Concomitant]
  8. LISINOPRIL [Concomitant]

REACTIONS (4)
  - THROMBOCYTOPENIA [None]
  - NEUTROPENIA [None]
  - ANAEMIA [None]
  - ABSCESS LIMB [None]
